FAERS Safety Report 24357460 (Version 1)
Quarter: 2024Q3

REPORT INFORMATION
  Report Type: Spontaneous
  Country: US (occurrence: US)
  Receive Date: 20240924
  Receipt Date: 20240924
  Transmission Date: 20241016
  Serious: Yes (Hospitalization)
  Sender: TORRENT
  Company Number: US-TORRENT-00013753

PATIENT
  Age: 20 Year
  Sex: Female

DRUGS (4)
  1. RISPERIDONE [Suspect]
     Active Substance: RISPERIDONE
     Indication: Neuropsychological symptoms
     Dosage: UNKNOWN
     Route: 065
  2. DEXMEDETOMIDINE [Suspect]
     Active Substance: DEXMEDETOMIDINE
     Indication: Neuropsychological symptoms
     Dosage: UNKNOWN
  3. DIAZEPAM [Suspect]
     Active Substance: DIAZEPAM
     Indication: Neuropsychological symptoms
     Dosage: UNKNOWN
     Route: 065
  4. MIDAZOLAM [Suspect]
     Active Substance: MIDAZOLAM
     Indication: Neuropsychological symptoms
     Dosage: UNKNOWN
     Route: 065

REACTIONS (3)
  - Treatment failure [Unknown]
  - Condition aggravated [Recovering/Resolving]
  - Neuropsychological symptoms [Recovering/Resolving]
